FAERS Safety Report 14233425 (Version 3)
Quarter: 2018Q2

REPORT INFORMATION
  Report Type: Report from Study
  Country: CA (occurrence: CA)
  Receive Date: 20171129
  Receipt Date: 20180502
  Transmission Date: 20180711
  Serious: Yes (Other)
  Sender: FDA-Public Use
  Company Number: CA-PFIZER INC-2017510433

PATIENT
  Age: 67 Year
  Sex: Male

DRUGS (12)
  1. ENTYVIO [Suspect]
     Active Substance: VEDOLIZUMAB
     Dosage: 300 MG, Q4WEEKS
     Route: 042
     Dates: start: 20171123
  2. JANUMET [Concomitant]
     Active Substance: METFORMIN HYDROCHLORIDE\SITAGLIPTIN PHOSPHATE
     Dosage: 1000MG/50MG, BID
  3. ULORIC [Concomitant]
     Active Substance: FEBUXOSTAT
     Dosage: 80 MG, QD
  4. TECTA [Suspect]
     Active Substance: PANTOPRAZOLE MAGNESIUM
     Dosage: 40 MG, QD
     Route: 065
  5. ALTACE [Concomitant]
     Active Substance: RAMIPRIL
     Dosage: 2.5 MG, QD
  6. ENTYVIO [Suspect]
     Active Substance: VEDOLIZUMAB
     Dosage: 300 MG, Q4WEEKS
     Route: 042
  7. SALOFALK [Concomitant]
     Active Substance: MESALAMINE
     Dosage: 4 G, QD
     Route: 054
  8. SIMVASTATIN. [Concomitant]
     Active Substance: SIMVASTATIN
     Dosage: 40 MG, QD
  9. TENORMIN [Concomitant]
     Active Substance: ATENOLOL
     Dosage: 50 MG, QD
  10. ENTYVIO [Suspect]
     Active Substance: VEDOLIZUMAB
     Indication: COLITIS ULCERATIVE
     Dosage: 300 MG, UNK
     Route: 042
     Dates: start: 20170914
  11. ASA [Concomitant]
     Active Substance: ASPIRIN
     Dosage: UNK, QD
  12. MEZAVANT [Concomitant]
     Active Substance: MESALAMINE
     Dosage: 1200 MG, QD

REACTIONS (2)
  - Colitis ulcerative [Not Recovered/Not Resolved]
  - Condition aggravated [Not Recovered/Not Resolved]

NARRATIVE: CASE EVENT DATE: 2017
